FAERS Safety Report 7591653-8 (Version None)
Quarter: 2011Q3

REPORT INFORMATION
  Report Type: 
  Country: None (occurrence: None)
  Receive Date: 20110706
  Receipt Date: 20110118
  Transmission Date: 20111222
  Serious: Yes (Hospitalization, Other)
  Sender: FDA-Public Use
  Company Number: US-BAYER-2011-005059

PATIENT
  Age: 30 Year
  Sex: Female
  Weight: 104.31 kg

DRUGS (6)
  1. YASMIN [Suspect]
     Indication: ACNE
     Dosage: UNK
     Dates: start: 20040101, end: 20080101
  2. SINGULAIR [Concomitant]
     Indication: ASTHMA
     Dosage: UNK
     Dates: start: 20080101
  3. HYDROCHLOROTHIAZIDE [Concomitant]
     Dosage: UNK
     Dates: start: 20080101
  4. YAZ [Suspect]
     Indication: ACNE
     Dosage: UNK
     Dates: start: 20040101, end: 20080101
  5. SEASONALE [Concomitant]
     Dosage: UNK
     Dates: start: 20050101, end: 20060501
  6. METOPROLOL TARTRATE [Concomitant]
     Indication: BLOOD PRESSURE ABNORMAL
     Dosage: UNK
     Dates: start: 20080101

REACTIONS (5)
  - CHOLECYSTITIS ACUTE [None]
  - INJURY [None]
  - PAIN [None]
  - CHOLECYSTITIS CHRONIC [None]
  - GALLBLADDER DISORDER [None]
